FAERS Safety Report 9695900 (Version 3)
Quarter: 2014Q2

REPORT INFORMATION
  Report Type: Spontaneous
  Country: US (occurrence: US)
  Receive Date: 20131119
  Receipt Date: 20140409
  Transmission Date: 20141212
  Serious: Yes (Hospitalization)
  Sender: FDA-Public Use
  Company Number: US-BAYER-2013-137712

PATIENT
  Age: 29 Year
  Sex: Female
  Weight: 72.56 kg

DRUGS (4)
  1. MIRENA [Suspect]
     Indication: CONTRACEPTION
     Dosage: 20 MCG/24HR, CONT
     Route: 015
     Dates: start: 20101213, end: 20111205
  2. SERTRALINE [Concomitant]
     Indication: DEPRESSION
     Dosage: UNK
     Dates: start: 2010
  3. ZOLOFT [Concomitant]
     Indication: DEPRESSION
  4. PRENATAL VITAMINS [Concomitant]

REACTIONS (9)
  - Gastrointestinal injury [None]
  - Uterine perforation [Recovered/Resolved]
  - Injury [Recovered/Resolved]
  - Pain [Recovered/Resolved]
  - Emotional distress [None]
  - Device dislocation [Recovered/Resolved]
  - Device issue [Recovered/Resolved]
  - Mental disorder [None]
  - Depression [None]
